FAERS Safety Report 21756944 (Version 1)
Quarter: 2022Q4

REPORT INFORMATION
  Report Type: Spontaneous
  Country: JP (occurrence: None)
  Receive Date: 20221220
  Receipt Date: 20221220
  Transmission Date: 20230113
  Serious: Yes (Other)
  Sender: FDA-Public Use
  Company Number: 2022A409839

PATIENT
  Age: 70 Year
  Sex: Male

DRUGS (8)
  1. IRESSA [Suspect]
     Active Substance: GEFITINIB
     Indication: Lung adenocarcinoma
     Route: 048
  2. TAGRISSO [Suspect]
     Active Substance: OSIMERTINIB
     Indication: Non-small cell lung cancer
     Route: 048
  3. AFATINIB DIMALEATE [Concomitant]
     Active Substance: AFATINIB DIMALEATE
     Indication: Non-small cell lung cancer
     Dosage: DOSE UNKNOWN
     Route: 065
  4. CARBOPLATIN [Concomitant]
     Active Substance: CARBOPLATIN
     Indication: Non-small cell lung cancer
     Dosage: DOSE UNKNOWN
     Route: 065
  5. PEMETREXED [Concomitant]
     Active Substance: PEMETREXED
     Indication: Non-small cell lung cancer
     Dosage: DOSE UNKNOWN
     Route: 065
  6. ERLOTINIB HYDROCHLORIDE [Concomitant]
     Active Substance: ERLOTINIB HYDROCHLORIDE
     Indication: Non-small cell lung cancer
     Dosage: DOSE UNKNOWN
     Route: 065
  7. DOCETAXEL [Concomitant]
     Active Substance: DOCETAXEL
     Indication: Non-small cell lung cancer
     Dosage: DOSE UNKNOWN
     Route: 065
  8. RAMUCIRUMAB [Concomitant]
     Active Substance: RAMUCIRUMAB
     Indication: Non-small cell lung cancer
     Dosage: DOSE UNKNOWN
     Route: 065

REACTIONS (2)
  - Drug-induced liver injury [Unknown]
  - Interstitial lung disease [Recovered/Resolved]
